FAERS Safety Report 5285001-6 (Version None)
Quarter: 2007Q1

REPORT INFORMATION
  Report Type: 
  Country: None (occurrence: None)
  Receive Date: 20061229
  Receipt Date: 20060901
  Transmission Date: 20070707
  Serious: Yes (Other)
  Sender: FDA-Public Use
  Company Number: 2006UW17352

PATIENT
  Age: 75 Year
  Sex: Female
  Weight: 73.028 kg

DRUGS (12)
  1. CRESTOR [Suspect]
     Indication: BLOOD CHOLESTEROL INCREASED
     Dosage: 5 MG PO
     Route: 048
     Dates: start: 20060801
  2. PREVACID [Concomitant]
  3. SYNTHROID [Concomitant]
  4. K-DUR 10 [Concomitant]
  5. ASPIRIN [Concomitant]
  6. ZYRTEC [Concomitant]
  7. LASIX [Concomitant]
  8. IRON SUPPLEMENT [Concomitant]
  9. CALCIUM [Concomitant]
  10. ASCORBIC ACID [Concomitant]
  11. MAGNESIUM [Concomitant]
  12. COLACE [Concomitant]

REACTIONS (2)
  - DRY SKIN [None]
  - SKIN EXFOLIATION [None]
